FAERS Safety Report 7097836-8 (Version None)
Quarter: 2010Q4

REPORT INFORMATION
  Report Type: 
  Country: None (occurrence: None)
  Receive Date: 20101112
  Receipt Date: 20101109
  Transmission Date: 20110411
  Serious: Yes (Hospitalization, Disabling, Other)
  Sender: FDA-Public Use
  Company Number: US-CEPHALON-2010005524

PATIENT
  Sex: Female
  Weight: 62 kg

DRUGS (4)
  1. TREANDA [Suspect]
     Indication: CHRONIC LYMPHOCYTIC LEUKAEMIA
     Route: 042
     Dates: start: 20100923, end: 20100924
  2. RITUXAN [Concomitant]
     Indication: CHRONIC LYMPHOCYTIC LEUKAEMIA
     Dates: start: 20100923, end: 20100924
  3. ALLOPURINOL [Concomitant]
  4. ACYCLOVIR SODIUM [Concomitant]

REACTIONS (5)
  - BLOOD ALKALINE PHOSPHATASE INCREASED [None]
  - BLOOD BILIRUBIN INCREASED [None]
  - FATIGUE [None]
  - HEPATOTOXICITY [None]
  - JAUNDICE [None]
